FAERS Safety Report 10914205 (Version 2)
Quarter: 2015Q2

REPORT INFORMATION
  Report Type: Report from Study
  Country: TR (occurrence: TR)
  Receive Date: 20150313
  Receipt Date: 20150520
  Transmission Date: 20150821
  Serious: Yes (Hospitalization, Other)
  Sender: FDA-Public Use
  Company Number: PHHY2015TR025851

PATIENT
  Age: 12 Year
  Sex: Female
  Weight: 35.2 kg

DRUGS (2)
  1. ZINC O [Concomitant]
     Indication: PRODUCT USED FOR UNKNOWN INDICATION
     Route: 065
  2. SOMATROPIN [Suspect]
     Active Substance: SOMATROPIN
     Indication: GROWTH HORMONE DEFICIENCY
     Dosage: 1 MG, QD (30 IU)
     Route: 058
     Dates: start: 20140528, end: 201504

REACTIONS (5)
  - Bone pain [Not Recovered/Not Resolved]
  - Syncope [Not Recovered/Not Resolved]
  - Enuresis [Not Recovered/Not Resolved]
  - Lower extremity mass [Not Recovered/Not Resolved]
  - Cyanosis [Unknown]

NARRATIVE: CASE EVENT DATE: 20150223
